FAERS Safety Report 6124197-0 (Version None)
Quarter: 2009Q1

REPORT INFORMATION
  Report Type: 
  Country: None (occurrence: None)
  Receive Date: 20090317
  Receipt Date: 20090304
  Transmission Date: 20090719
  Serious: Yes (Other)
  Sender: FDA-Public Use
  Company Number: 20096365

PATIENT
  Sex: Female

DRUGS (1)
  1. LIORESAL [Suspect]
     Indication: MUSCLE SPASTICITY
     Dosage: MCG, DAILY, INTRATHECAL
     Route: 037

REACTIONS (11)
  - BODY TEMPERATURE INCREASED [None]
  - CATATONIA [None]
  - DEPRESSION [None]
  - FAMILY STRESS [None]
  - HALLUCINATION [None]
  - IMPULSIVE BEHAVIOUR [None]
  - MEDICAL DEVICE COMPLICATION [None]
  - MENTAL STATUS CHANGES [None]
  - MULTIPLE DRUG OVERDOSE [None]
  - PSYCHOTIC DISORDER [None]
  - TREMOR [None]
